FAERS Safety Report 10447103 (Version 2)
Quarter: 2014Q3

REPORT INFORMATION
  Report Type: Spontaneous
  Country: JP (occurrence: JP)
  Receive Date: 20140911
  Receipt Date: 20140911
  Transmission Date: 20150326
  Serious: Yes (Hospitalization)
  Sender: FDA-Public Use
  Company Number: PHHY2014JP084910

PATIENT
  Age: 15 Year
  Sex: Male

DRUGS (3)
  1. NEORAL [Suspect]
     Active Substance: CYCLOSPORINE
     Indication: GRAFT VERSUS HOST DISEASE
  2. PREDNISOLONE. [Suspect]
     Active Substance: PREDNISOLONE
     Route: 048
  3. NEORAL [Suspect]
     Active Substance: CYCLOSPORINE
     Indication: OBLITERATIVE BRONCHIOLITIS
     Route: 048

REACTIONS (7)
  - Respiratory disorder [Unknown]
  - Pyrexia [Unknown]
  - Altered state of consciousness [Recovering/Resolving]
  - Brain oedema [Unknown]
  - Rash [Unknown]
  - Encephalitis post measles [Unknown]
  - Pneumonia measles [Unknown]
